FAERS Safety Report 8598331 (Version 2)
Quarter: 2013Q3

REPORT INFORMATION
  Report Type: Spontaneous
  Country: US (occurrence: US)
  Receive Date: 20120605
  Receipt Date: 20130722
  Transmission Date: 20140515
  Serious: Yes (Hospitalization, Disabling)
  Sender: FDA-Public Use
  Company Number: US-ASTRAZENECA-2012SE35274

PATIENT
  Age: 40 Year
  Sex: Female
  Weight: 90.7 kg

DRUGS (9)
  1. NEXIUM [Suspect]
     Indication: DYSPEPSIA
     Route: 048
  2. PRILOSEC [Suspect]
     Indication: DYSPEPSIA
     Route: 048
  3. PROTONIX [Concomitant]
     Indication: DYSPEPSIA
  4. ZANTAC [Concomitant]
     Indication: DYSPEPSIA
  5. PREVACID [Concomitant]
     Indication: DYSPEPSIA
  6. TUM [Concomitant]
     Indication: DYSPEPSIA
  7. ALKA-SELTZER [Concomitant]
     Indication: DYSPEPSIA
  8. PEPCID [Concomitant]
  9. TAGAMET [Concomitant]

REACTIONS (11)
  - Arthropathy [Unknown]
  - Ankle deformity [Unknown]
  - Thyroid disorder [Unknown]
  - Carpal tunnel syndrome [Unknown]
  - Trigger finger [Unknown]
  - Uterine disorder [Unknown]
  - Osteoporosis [Unknown]
  - Multiple fractures [Unknown]
  - Foot fracture [Unknown]
  - Back disorder [Unknown]
  - Limb discomfort [Unknown]
